FAERS Safety Report 7483639-9 (Version None)
Quarter: 2011Q2

REPORT INFORMATION
  Report Type: 
  Country: None (occurrence: None)
  Receive Date: 20110517
  Receipt Date: 20110512
  Transmission Date: 20111010
  Serious: No
  Sender: FDA-Public Use
  Company Number: US-PFIZER INC-2011102336

PATIENT
  Sex: Female

DRUGS (7)
  1. CELEXA [Suspect]
     Indication: DEPRESSION
     Dosage: 10 MG, DAILY
     Route: 048
  2. PAXIL [Concomitant]
     Indication: DEPRESSION
     Dosage: 10MG
     Route: 048
  3. CELEXA [Suspect]
     Dosage: 10 MG,DAILY
     Route: 048
  4. CELEXA [Suspect]
     Dosage: 40 MG, DAILY
     Route: 048
  5. CELEXA [Suspect]
     Dosage: 30MG, DAILY
     Route: 048
  6. CELEXA [Suspect]
     Dosage: 40MG, DAILY
     Route: 048
  7. PRISTIQ [Suspect]
     Dosage: UNK

REACTIONS (5)
  - DEPRESSION [None]
  - ANXIETY [None]
  - FATIGUE [None]
  - HEADACHE [None]
  - DRUG INEFFECTIVE [None]
